FAERS Safety Report 13412162 (Version 4)
Quarter: 2023Q1

REPORT INFORMATION
  Report Type: Spontaneous
  Country: US (occurrence: US)
  Receive Date: 20170406
  Receipt Date: 20230220
  Transmission Date: 20230417
  Serious: Yes (Other)
  Sender: FDA-Public Use
  Company Number: US-JNJFOC-20170314456

PATIENT
  Age: 3 Decade
  Sex: Male

DRUGS (20)
  1. RISPERDAL [Suspect]
     Active Substance: RISPERIDONE
     Indication: Psychotic disorder
     Route: 048
     Dates: start: 200303
  2. RISPERDAL [Suspect]
     Active Substance: RISPERIDONE
     Indication: Schizophrenia
     Dosage: 2 MG AND 50 MG
     Route: 048
     Dates: start: 20100921, end: 20120623
  3. RISPERDAL [Suspect]
     Active Substance: RISPERIDONE
     Indication: Substance abuse
     Route: 048
     Dates: end: 20141017
  4. RISPERDAL [Suspect]
     Active Substance: RISPERIDONE
     Indication: Psychiatric symptom
  5. RISPERIDONE [Suspect]
     Active Substance: RISPERIDONE
     Indication: Mental disorder
     Dosage: 0.5 MG, 1 MG AND 2 MG OF VARYING FREQUENCY
     Route: 065
     Dates: start: 20100922, end: 20130326
  6. RISPERIDONE [Suspect]
     Active Substance: RISPERIDONE
     Indication: Schizophrenia
     Route: 065
     Dates: start: 201605
  7. RISPERIDONE [Suspect]
     Active Substance: RISPERIDONE
     Indication: Substance abuse
  8. RISPERDAL M-TAB [Suspect]
     Active Substance: RISPERIDONE
     Indication: Schizophrenia
     Dosage: 1 MG, 2 MG
     Route: 048
     Dates: start: 20120622, end: 20120628
  9. RISPERDAL M-TAB [Suspect]
     Active Substance: RISPERIDONE
     Indication: Substance abuse
  10. INVEGA [Suspect]
     Active Substance: PALIPERIDONE
     Indication: Psychiatric symptom
     Route: 048
     Dates: start: 20131126, end: 20141125
  11. INVEGA [Suspect]
     Active Substance: PALIPERIDONE
     Indication: Schizophrenia
  12. INVEGA [Suspect]
     Active Substance: PALIPERIDONE
     Indication: Substance abuse
  13. INVEGA SUSTENNA [Suspect]
     Active Substance: PALIPERIDONE PALMITATE
     Indication: Schizophrenia
     Route: 030
     Dates: start: 20131126
  14. INVEGA SUSTENNA [Suspect]
     Active Substance: PALIPERIDONE PALMITATE
     Indication: Substance abuse
     Route: 030
     Dates: start: 20140120, end: 20141125
  15. INVEGA SUSTENNA [Suspect]
     Active Substance: PALIPERIDONE PALMITATE
  16. RISPERDAL CONSTA [Suspect]
     Active Substance: RISPERIDONE
     Indication: Substance abuse
     Dosage: 50 MG AND 37.5 MG
     Route: 030
     Dates: start: 20130731, end: 20131113
  17. RISPERDAL CONSTA [Suspect]
     Active Substance: RISPERIDONE
     Indication: Schizophrenia
  18. RISPERDAL CONSTA [Suspect]
     Active Substance: RISPERIDONE
  19. RISPERDAL CONSTA [Suspect]
     Active Substance: RISPERIDONE
  20. RISPERIDONE [Suspect]
     Active Substance: RISPERIDONE
     Indication: Product used for unknown indication
     Route: 048

REACTIONS (4)
  - Erectile dysfunction [Unknown]
  - Sedation complication [Unknown]
  - Emotional distress [Unknown]
  - Gynaecomastia [Unknown]

NARRATIVE: CASE EVENT DATE: 20130101
